FAERS Safety Report 5020674-4 (Version None)
Quarter: 2006Q2

REPORT INFORMATION
  Report Type: 
  Country: None (occurrence: None)
  Receive Date: 20060602
  Receipt Date: 20060515
  Transmission Date: 20061013
  Serious: Yes (Other)
  Sender: FDA-Public Use
  Company Number: US200604004800

PATIENT
  Age: 49 Year
  Sex: Female

DRUGS (2)
  1. FORTEO [Suspect]
     Indication: OSTEOPOROSIS
     Dates: start: 20050210, end: 20051201
  2. FORTEO [Concomitant]

REACTIONS (8)
  - BACK PAIN [None]
  - BONE SCAN ABNORMAL [None]
  - BREAST CANCER METASTATIC [None]
  - EWING'S SARCOMA [None]
  - LYMPHOMA [None]
  - PAIN IN EXTREMITY [None]
  - PRIMITIVE NEUROECTODERMAL TUMOUR [None]
  - SHOULDER PAIN [None]
